FAERS Safety Report 5532121-4 (Version None)
Quarter: 2007Q4

REPORT INFORMATION
  Report Type: 
  Country: None (occurrence: None)
  Receive Date: 20071130
  Receipt Date: 20071130
  Transmission Date: 20080405
  Serious: Yes (Hospitalization)
  Sender: FDA-Public Use
  Company Number: None

PATIENT
  Sex: Female
  Weight: 70 kg

DRUGS (2)
  1. TEMOZOLOMIDE [Suspect]
     Dosage: 1040 MG
  2. PHENYTOIN [Concomitant]

REACTIONS (4)
  - ASTHENIA [None]
  - DRUG ERUPTION [None]
  - PYREXIA [None]
  - RASH [None]
